FAERS Safety Report 4327700-6 (Version None)
Quarter: 2004Q1

REPORT INFORMATION
  Report Type: 
  Country: None (occurrence: None)
  Receive Date: 20040331
  Receipt Date: 20040322
  Transmission Date: 20041129
  Serious: Yes (Other)
  Sender: FDA-Public Use
  Company Number: IE-BRISTOL-MYERS SQUIBB COMPANY-12539714

PATIENT
  Sex: Female

DRUGS (3)
  1. COAPROVEL TABS 300MG/12.5MG [Suspect]
     Dosage: 300/12.5MG, ONE TABLET DAILY
     Route: 048
  2. FRUSEMIDE [Concomitant]
  3. FLUOXETINE [Concomitant]

REACTIONS (1)
  - ELECTROCARDIOGRAM QT PROLONGED [None]
